FAERS Safety Report 15987762 (Version 7)
Quarter: 2021Q4

REPORT INFORMATION
  Report Type: Spontaneous
  Country: US (occurrence: US)
  Receive Date: 20190220
  Receipt Date: 20211129
  Transmission Date: 20220303
  Serious: No
  Sender: FDA-Public Use
  Company Number: US-PFIZER INC-2019060163

PATIENT
  Age: 63 Year
  Sex: Male
  Weight: 125 kg

DRUGS (5)
  1. LYRICA [Suspect]
     Active Substance: PREGABALIN
     Indication: Fibromyalgia
     Dosage: 300 MG, 2X/DAY; (TAKE 1 CAPSULE BY MOUTH TWICE A DAY AS DIRECTED BY PHYSICIAN)
     Route: 048
     Dates: start: 2008
  2. LYRICA [Suspect]
     Active Substance: PREGABALIN
     Indication: Diabetic neuropathy
  3. LYRICA [Suspect]
     Active Substance: PREGABALIN
     Indication: Type 2 diabetes mellitus
  4. LYRICA [Suspect]
     Active Substance: PREGABALIN
     Indication: Drug therapy
  5. METFORMIN [Concomitant]
     Active Substance: METFORMIN HYDROCHLORIDE
     Indication: Diabetes mellitus
     Dosage: UNK

REACTIONS (6)
  - Therapeutic product effect incomplete [Unknown]
  - Off label use [Unknown]
  - Behaviour disorder [Unknown]
  - Fall [Unknown]
  - Pain [Unknown]
  - Muscle twitching [Unknown]

NARRATIVE: CASE EVENT DATE: 20080101
